FAERS Safety Report 9172470 (Version 1)
Quarter: 2013Q1

REPORT INFORMATION
  Report Type: Spontaneous
  Country: US (occurrence: US)
  Receive Date: 20130319
  Receipt Date: 20130319
  Transmission Date: 20140127
  Serious: Yes (Other)
  Sender: FDA-Public Use
  Company Number: US-ROXANE LABORATORIES, INC.-2013-BI-04891GD

PATIENT
  Age: 81 Year
  Sex: Female

DRUGS (3)
  1. PREDNISONE [Suspect]
     Indication: RHEUMATOID ARTHRITIS
     Dosage: 2.5 MG
  2. METHOTREXATE [Suspect]
     Indication: RHEUMATOID ARTHRITIS
     Dosage: 1.4286 MG
  3. 5-FLUOROURACIL [Suspect]
     Indication: ACTINIC KERATOSIS
     Route: 061

REACTIONS (5)
  - Dermatitis contact [Unknown]
  - Eczema herpeticum [Unknown]
  - Superinfection [Unknown]
  - Serratia infection [Unknown]
  - Candida infection [Unknown]
